FAERS Safety Report 9787696 (Version 1)
Quarter: 2013Q4

REPORT INFORMATION
  Report Type: Spontaneous
  Country: US (occurrence: US)
  Receive Date: 20131230
  Receipt Date: 20131230
  Transmission Date: 20140711
  Serious: No
  Sender: FDA-Public Use
  Company Number: US-009507513-1312USA011841

PATIENT
  Age: 23 Year
  Sex: Female
  Weight: 56.69 kg

DRUGS (2)
  1. NUVARING [Suspect]
     Indication: CONTRACEPTION
     Dosage: 3 STANDARD DOSE S OF 1 (1 RING FOR 3 WEEKS ON AND 1 WEEK OFF )
     Route: 067
     Dates: start: 2010, end: 2012
  2. NUVARING [Suspect]
     Dosage: 3 STANDARD DOSE S OF 1 (1 RING FOR 3 WEEKS ON AND 1 WEEK OFF )
     Route: 067
     Dates: start: 201310, end: 201312

REACTIONS (3)
  - Vulvovaginal discomfort [Not Recovered/Not Resolved]
  - Vaginal haemorrhage [Not Recovered/Not Resolved]
  - Product quality issue [Unknown]
